FAERS Safety Report 25375765 (Version 5)
Quarter: 2025Q3

REPORT INFORMATION
  Report Type: Spontaneous
  Country: US (occurrence: US)
  Receive Date: 20250529
  Receipt Date: 20250807
  Transmission Date: 20251020
  Serious: No
  Sender: PFIZER
  Company Number: US-PFIZER INC-202500104779

PATIENT
  Age: 10 Year
  Sex: Female
  Weight: 28.576 kg

DRUGS (1)
  1. GENOTROPIN [Suspect]
     Active Substance: SOMATROPIN

REACTIONS (3)
  - Device defective [Unknown]
  - Device information output issue [Unknown]
  - Drug dose omission by device [Unknown]
